FAERS Safety Report 5814627-3 (Version None)
Quarter: 2008Q3

REPORT INFORMATION
  Report Type: 
  Country: None (occurrence: None)
  Receive Date: 20080718
  Receipt Date: 20070718
  Transmission Date: 20090109
  Serious: No
  Sender: FDA-Public Use
  Company Number: US-KINGPHARMUSA00001-K200700910

PATIENT

DRUGS (5)
  1. LEVOXYL [Suspect]
     Indication: HYPOTHYROIDISM
     Dosage: 25 MCG, QD
     Route: 048
     Dates: start: 20070201, end: 20070701
  2. THORAZINE      /00011902/ [Concomitant]
     Indication: MENTAL DISORDER
  3. PAMELOR [Concomitant]
     Indication: MENTAL DISORDER
  4. ASPIRIN [Concomitant]
     Dosage: UNK, PRN
  5. ANTIHISTAMINES [Concomitant]
     Dosage: UNK, PRN

REACTIONS (7)
  - ALOPECIA [None]
  - DEPRESSION [None]
  - DRUG INEFFECTIVE [None]
  - FATIGUE [None]
  - INSOMNIA [None]
  - TEMPERATURE INTOLERANCE [None]
  - WEIGHT INCREASED [None]
